FAERS Safety Report 6640167-8 (Version None)
Quarter: 2010Q1

REPORT INFORMATION
  Report Type: 
  Country: None (occurrence: None)
  Receive Date: 20100318
  Receipt Date: 20100308
  Transmission Date: 20100710
  Serious: Yes (Other)
  Sender: FDA-Public Use
  Company Number: HN-ROCHE-689573

PATIENT
  Sex: Female
  Weight: 80 kg

DRUGS (7)
  1. ACTEMRA [Suspect]
     Indication: RHEUMATOID ARTHRITIS
     Route: 042
     Dates: start: 20091114
  2. METHOTREXATE [Concomitant]
     Indication: RHEUMATOID ARTHRITIS
  3. PREDNISONE [Concomitant]
  4. OMEPRAZOLE [Concomitant]
     Dosage: FREQUENCY QD
     Route: 048
  5. IMIPRAMINE [Concomitant]
     Dosage: FREQUENCY REPORTED AS QD
  6. ALPRAZOLAM [Concomitant]
     Dosage: FREQUENCY QD
     Route: 048
  7. DOXIUM [Concomitant]
     Dosage: FREQUENCY QD

REACTIONS (1)
  - CONVULSION [None]
